FAERS Safety Report 9014051 (Version 1)
Quarter: 2013Q1

REPORT INFORMATION
  Report Type: Spontaneous
  Country: US (occurrence: US)
  Receive Date: 20130115
  Receipt Date: 20130115
  Transmission Date: 20140127
  Serious: Yes (Hospitalization, Other)
  Sender: FDA-Public Use
  Company Number: US-ROCHE-1178159

PATIENT
  Sex: Female

DRUGS (12)
  1. KLONOPIN [Suspect]
     Indication: PRODUCT USED FOR UNKNOWN INDICATION
     Route: 065
  2. AVASTIN [Suspect]
     Indication: LUNG CARCINOMA CELL TYPE UNSPECIFIED STAGE IV
     Route: 065
     Dates: end: 20121007
  3. ERBITUX [Suspect]
     Indication: PRODUCT USED FOR UNKNOWN INDICATION
     Route: 065
  4. CARBOPLATIN [Suspect]
     Indication: PRODUCT USED FOR UNKNOWN INDICATION
     Route: 065
  5. PACLITAXEL [Suspect]
     Indication: PRODUCT USED FOR UNKNOWN INDICATION
     Route: 065
  6. TEMAZEPAM [Concomitant]
  7. HALOPERIDOL [Concomitant]
  8. MIRTAZAPINE [Concomitant]
  9. ABILIFY [Concomitant]
  10. ACTONEL [Concomitant]
  11. ALBUTEROL [Concomitant]
  12. ATROVENT [Concomitant]

REACTIONS (2)
  - Gastrointestinal disorder [Unknown]
  - Lung neoplasm [Unknown]
